FAERS Safety Report 9897219 (Version 3)
Quarter: 2014Q1

REPORT INFORMATION
  Report Type: Report from Study
  Country: US (occurrence: US)
  Receive Date: 20140214
  Receipt Date: 20140226
  Transmission Date: 20141002
  Serious: Yes (Hospitalization)
  Sender: FDA-Public Use
  Company Number: US-ACTELION-A-US2012-66019

PATIENT
  Age: 47 Year
  Sex: Female

DRUGS (3)
  1. TRACLEER [Suspect]
     Indication: PULMONARY HYPERTENSION
     Dosage: UNK
     Route: 048
  2. VENTAVIS [Suspect]
     Indication: PULMONARY HYPERTENSION
     Dosage: 5 MCG, 6XDAILY
     Route: 055
  3. ASPIRIN [Concomitant]

REACTIONS (5)
  - Pneumothorax [Recovered/Resolved]
  - Influenza [Recovered/Resolved]
  - Pneumonia [Recovered/Resolved]
  - Respiratory tract congestion [Recovered/Resolved]
  - Respiratory failure [Recovered/Resolved]
